FAERS Safety Report 10061702 (Version 1)
Quarter: 2014Q2

REPORT INFORMATION
  Report Type: Spontaneous
  Country: US (occurrence: US)
  Receive Date: 20140407
  Receipt Date: 20140407
  Transmission Date: 20141212
  Serious: No
  Sender: FDA-Public Use
  Company Number: US-TARO-2013P1021691

PATIENT
  Age: 69 Year
  Sex: Male

DRUGS (5)
  1. FLUOROURACIL TOPICAL CREAM USP 5% [Suspect]
     Indication: ACTINIC KERATOSIS
     Route: 061
     Dates: start: 201311, end: 20131125
  2. ASPIRIN [Concomitant]
  3. NEXIUM [Concomitant]
  4. DILTIAZEM [Concomitant]
  5. NEURONTIN [Concomitant]

REACTIONS (2)
  - Product measured potency issue [Unknown]
  - Drug ineffective [Unknown]
